FAERS Safety Report 18384636 (Version 2)
Quarter: 2020Q4

REPORT INFORMATION
  Report Type: Report from Study
  Country: US (occurrence: US)
  Receive Date: 20201014
  Receipt Date: 20201112
  Transmission Date: 20210114
  Serious: No
  Sender: FDA-Public Use
  Company Number: US-B.I. PHARMACEUTICALS,INC./RIDGEFIELD-2020-BI-054999

PATIENT
  Age: 53 Year
  Sex: Female

DRUGS (1)
  1. OFEV [Suspect]
     Active Substance: NINTEDANIB
     Indication: SYSTEMIC SCLEROSIS PULMONARY
     Dosage: OFEV DOSE 300MG DAILY
     Route: 048
     Dates: start: 20200916

REACTIONS (4)
  - Blood test abnormal [Unknown]
  - Feeling abnormal [Unknown]
  - Dyspepsia [Not Recovered/Not Resolved]
  - Nausea [Recovered/Resolved]

NARRATIVE: CASE EVENT DATE: 202010
